FAERS Safety Report 8273986-5 (Version None)
Quarter: 2012Q2

REPORT INFORMATION
  Report Type: 
  Country: None (occurrence: None)
  Receive Date: 20120406
  Receipt Date: 20120406
  Transmission Date: 20120825
  Serious: Yes (Life-Threatening)
  Sender: FDA-Public Use
  Company Number: None

PATIENT
  Sex: Female
  Weight: 87.5442 kg

DRUGS (1)
  1. AVELOX [Suspect]
     Indication: GASTROINTESTINAL DISORDER
     Dosage: ONCE
     Dates: start: 20120221

REACTIONS (4)
  - PRURITUS [None]
  - SWELLING [None]
  - ERYTHEMA [None]
  - VISUAL ACUITY REDUCED [None]
